FAERS Safety Report 21442357 (Version 1)
Quarter: 2022Q4

REPORT INFORMATION
  Report Type: Spontaneous
  Country: US (occurrence: US)
  Receive Date: 20221011
  Receipt Date: 20221011
  Transmission Date: 20230113
  Serious: Yes (Hospitalization)
  Sender: FDA-Public Use
  Company Number: US-BRISTOL-MYERS SQUIBB COMPANY-2022-117103

PATIENT
  Age: 59 Year
  Sex: Male

DRUGS (1)
  1. REVLIMID [Suspect]
     Active Substance: LENALIDOMIDE
     Indication: Product used for unknown indication
     Dosage: TAKE 1 CAPSULE MOUTH DAILY FOR 7 DAYS FOLLOMD ?7 DAYS OFF AND FOR A 28 DAY CYCLE
     Route: 065
     Dates: start: 20220322

REACTIONS (2)
  - Asthenia [Not Recovered/Not Resolved]
  - Off label use [Unknown]
